FAERS Safety Report 5878684-0 (Version None)
Quarter: 2008Q3

REPORT INFORMATION
  Report Type: 
  Country: None (occurrence: None)
  Receive Date: 20080910
  Receipt Date: 20080826
  Transmission Date: 20090109
  Serious: Yes (Death, Hospitalization)
  Sender: FDA-Public Use
  Company Number: 2008US002258

PATIENT
  Age: 50 Year
  Sex: Female

DRUGS (3)
  1. PROGRAF [Suspect]
     Indication: RENAL TRANSPLANT
  2. PREDNISOLONE ACETATE [Suspect]
     Indication: RENAL TRANSPLANT
  3. MYCOPHENOLATE MOFETIL [Suspect]
     Indication: RENAL TRANSPLANT

REACTIONS (9)
  - ALANINE AMINOTRANSFERASE INCREASED [None]
  - ASPARTATE AMINOTRANSFERASE INCREASED [None]
  - BLOOD LACTATE DEHYDROGENASE INCREASED [None]
  - INFECTION IN AN IMMUNOCOMPROMISED HOST [None]
  - MULTI-ORGAN FAILURE [None]
  - PULMONARY ALVEOLAR HAEMORRHAGE [None]
  - RESPIRATORY FAILURE [None]
  - STRONGYLOIDIASIS [None]
  - URINARY TRACT INFECTION [None]
